FAERS Safety Report 18956949 (Version 1)
Quarter: 2021Q1

REPORT INFORMATION
  Report Type: Spontaneous
  Country: US (occurrence: US)
  Receive Date: 20210302
  Receipt Date: 20210302
  Transmission Date: 20210420
  Serious: No
  Sender: FDA-Public Use
  Company Number: US-ASTRAZENECA-2021A087382

PATIENT
  Age: 967 Month
  Sex: Female
  Weight: 51.7 kg

DRUGS (3)
  1. GENERIC SYMBICORT [Suspect]
     Active Substance: BUDESONIDE\FORMOTEROL FUMARATE DIHYDRATE
     Indication: BRONCHIECTASIS
     Dosage: 2 PUFF, TWO TIMES A DAY (GENERIC)
     Route: 055
     Dates: start: 20210121
  2. ELIQUIS [Concomitant]
     Active Substance: APIXABAN
  3. SYMBICORT [Suspect]
     Active Substance: BUDESONIDE\FORMOTEROL FUMARATE DIHYDRATE
     Indication: BRONCHIECTASIS
     Dosage: 2 INHALATIONS , TWO TIMES A DAY
     Route: 055

REACTIONS (2)
  - Product dose omission issue [Unknown]
  - Candida infection [Recovered/Resolved]

NARRATIVE: CASE EVENT DATE: 201903
